FAERS Safety Report 21905924 (Version 1)
Quarter: 2023Q1

REPORT INFORMATION
  Report Type: Spontaneous
  Country: CN (occurrence: CN)
  Receive Date: 20230124
  Receipt Date: 20230124
  Transmission Date: 20230418
  Serious: Yes (Other)
  Sender: FDA-Public Use
  Company Number: CN-BEIGENE USA INC-BGN-2023-000391

PATIENT

DRUGS (29)
  1. BRUKINSA [Suspect]
     Active Substance: ZANUBRUTINIB
     Indication: Diabetes mellitus
  2. BRUKINSA [Suspect]
     Active Substance: ZANUBRUTINIB
     Indication: Hypertension
  3. BRUKINSA [Suspect]
     Active Substance: ZANUBRUTINIB
     Indication: Mantle cell lymphoma
  4. GAZYVA [Suspect]
     Active Substance: OBINUTUZUMAB
     Indication: Diabetes mellitus
  5. GAZYVA [Suspect]
     Active Substance: OBINUTUZUMAB
     Indication: Hypertension
  6. GAZYVA [Suspect]
     Active Substance: OBINUTUZUMAB
     Indication: Mantle cell lymphoma
  7. MABTHERA [Suspect]
     Active Substance: RITUXIMAB
     Indication: Diabetes mellitus
  8. MABTHERA [Suspect]
     Active Substance: RITUXIMAB
     Indication: Hypertension
  9. MABTHERA [Suspect]
     Active Substance: RITUXIMAB
     Indication: Mantle cell lymphoma
  10. PALBOCICLIB [Suspect]
     Active Substance: PALBOCICLIB
     Indication: Diabetes mellitus
  11. PALBOCICLIB [Suspect]
     Active Substance: PALBOCICLIB
     Indication: Hypertension
  12. PALBOCICLIB [Suspect]
     Active Substance: PALBOCICLIB
     Indication: Mantle cell lymphoma
  13. VENETOCLAX [Suspect]
     Active Substance: VENETOCLAX
     Indication: Diabetes mellitus
  14. VENETOCLAX [Suspect]
     Active Substance: VENETOCLAX
     Indication: Hypertension
  15. VENETOCLAX [Suspect]
     Active Substance: VENETOCLAX
     Indication: Mantle cell lymphoma
  16. DEXAMETHASONE [Concomitant]
     Active Substance: DEXAMETHASONE
  17. LENALIDOMIDE [Concomitant]
     Active Substance: LENALIDOMIDE
  18. BORTEZOMIB [Concomitant]
     Active Substance: BORTEZOMIB
  19. LEVAMLODIPINE BESYLATE [Concomitant]
     Active Substance: LEVAMLODIPINE BESYLATE
  20. VALSARTAN [Concomitant]
     Active Substance: VALSARTAN
  21. ORELABRUTINIB [Concomitant]
     Active Substance: ORELABRUTINIB
  22. LANTUS [Concomitant]
     Active Substance: INSULIN GLARGINE
  23. BENDAMUSTINE [Concomitant]
     Active Substance: BENDAMUSTINE
  24. SELINEXOR [Concomitant]
     Active Substance: SELINEXOR
  25. DOXORUBICIN [Concomitant]
     Active Substance: DOXORUBICIN
  26. INSULIN GLARGINE [Concomitant]
     Active Substance: INSULIN GLARGINE
  27. CYCLOPHOSPHAMIDE [Concomitant]
     Active Substance: CYCLOPHOSPHAMIDE
  28. VINCRISTINE [Concomitant]
     Active Substance: VINCRISTINE
  29. PREDNISONE [Concomitant]
     Active Substance: PREDNISONE

REACTIONS (5)
  - Myelosuppression [Unknown]
  - Rash [Unknown]
  - Platelet count decreased [Unknown]
  - Peripheral swelling [Unknown]
  - Off label use [Unknown]
